FAERS Safety Report 22639691 (Version 1)
Quarter: 2023Q2

REPORT INFORMATION
  Report Type: Spontaneous
  Country: US (occurrence: US)
  Receive Date: 20230626
  Receipt Date: 20230626
  Transmission Date: 20230721
  Serious: Yes (Other)
  Sender: FDA-Public Use
  Company Number: US-STRIDES ARCOLAB LIMITED-2023SP009985

PATIENT
  Age: 15 Year
  Sex: Female

DRUGS (30)
  1. HALOPERIDOL [Suspect]
     Active Substance: HALOPERIDOL
     Indication: Schizoaffective disorder bipolar type
     Dosage: 12 MILLIGRAM, AT BED TIME (ADMINISTERED AT BEDTIME)
     Route: 048
  2. CITALOPRAM [Suspect]
     Active Substance: CITALOPRAM HYDROBROMIDE
     Indication: Depression
     Dosage: UNK
     Route: 065
  3. RISPERIDONE [Suspect]
     Active Substance: RISPERIDONE
     Indication: Schizoaffective disorder bipolar type
     Dosage: 4 MILLIGRAM, AT BED TIME (ADMINISTERED AT BEDTIME)
     Route: 048
  4. PAROXETINE [Suspect]
     Active Substance: PAROXETINE
     Indication: Generalised anxiety disorder
     Dosage: UNK
     Route: 065
  5. PAROXETINE [Suspect]
     Active Substance: PAROXETINE
     Indication: Depression
  6. PAROXETINE [Suspect]
     Active Substance: PAROXETINE
     Indication: Obsessive-compulsive disorder
  7. BENZTROPINE [Suspect]
     Active Substance: BENZTROPINE
     Indication: Drug therapy
     Dosage: 1 MILLIGRAM, BID
     Route: 048
  8. BENZTROPINE [Suspect]
     Active Substance: BENZTROPINE
     Dosage: 0.5 MILLIGRAM, BID (TAPERED DOSE) PER WEEK
     Route: 048
  9. BENZTROPINE [Suspect]
     Active Substance: BENZTROPINE
     Dosage: UNK (RE-INTRODUCED )
     Route: 065
  10. BENZTROPINE [Suspect]
     Active Substance: BENZTROPINE
     Dosage: UNK (DOSE WAS INCREASED OVER THE NEXT 2 WEEKS)
     Route: 065
  11. BENZTROPINE [Suspect]
     Active Substance: BENZTROPINE
     Dosage: UNK (CROSS-TAPERED )
     Route: 065
  12. ESCITALOPRAM [Suspect]
     Active Substance: ESCITALOPRAM OXALATE
     Indication: Depression
     Dosage: UNK
     Route: 065
  13. ESCITALOPRAM [Suspect]
     Active Substance: ESCITALOPRAM OXALATE
     Indication: Generalised anxiety disorder
  14. SERTRALINE [Suspect]
     Active Substance: SERTRALINE HYDROCHLORIDE
     Indication: Generalised anxiety disorder
     Dosage: UNK
     Route: 065
  15. SERTRALINE [Suspect]
     Active Substance: SERTRALINE HYDROCHLORIDE
     Indication: Depression
  16. SERTRALINE [Suspect]
     Active Substance: SERTRALINE HYDROCHLORIDE
     Indication: Obsessive-compulsive disorder
  17. VENLAFAXINE [Concomitant]
     Active Substance: VENLAFAXINE HYDROCHLORIDE
     Indication: Product used for unknown indication
     Dosage: UNK
     Route: 065
  18. BUSPIRONE [Concomitant]
     Active Substance: BUSPIRONE HYDROCHLORIDE
     Indication: Generalised anxiety disorder
     Dosage: UNK
     Route: 065
  19. GABAPENTIN [Concomitant]
     Active Substance: GABAPENTIN
     Indication: Product used for unknown indication
     Dosage: UNK
     Route: 065
  20. TIAGABINE [Concomitant]
     Active Substance: TIAGABINE
     Indication: Product used for unknown indication
     Dosage: UNK
     Route: 065
  21. CLONAZEPAM [Concomitant]
     Active Substance: CLONAZEPAM
     Indication: Generalised anxiety disorder
     Dosage: UNK
     Route: 065
  22. LITHIUM CARBONATE [Concomitant]
     Active Substance: LITHIUM CARBONATE
     Indication: Schizoaffective disorder bipolar type
     Dosage: UNK
     Route: 065
  23. DIVALPROEX SODIUM [Concomitant]
     Active Substance: DIVALPROEX SODIUM
     Indication: Schizoaffective disorder bipolar type
     Dosage: UNK
     Route: 065
  24. ARIPIPRAZOLE [Concomitant]
     Active Substance: ARIPIPRAZOLE
     Indication: Schizoaffective disorder bipolar type
     Dosage: UNK
     Route: 065
  25. QUETIAPINE [Concomitant]
     Active Substance: QUETIAPINE
     Indication: Schizoaffective disorder bipolar type
     Dosage: UNK
     Route: 065
  26. ZOLPIDEM [Concomitant]
     Active Substance: ZOLPIDEM TARTRATE
     Indication: Product used for unknown indication
     Dosage: UNK
     Route: 065
  27. TRAZODONE [Concomitant]
     Active Substance: TRAZODONE HYDROCHLORIDE
     Indication: Depression
     Dosage: UNK
     Route: 065
  28. MIRTAZAPINE [Concomitant]
     Active Substance: MIRTAZAPINE
     Indication: Depression
     Dosage: UNK
     Route: 065
  29. BUPROPION [Concomitant]
     Active Substance: BUPROPION
     Indication: Depression
     Dosage: UNK
     Route: 065
  30. METHYLPHENIDATE [Concomitant]
     Active Substance: METHYLPHENIDATE
     Indication: Attention deficit hyperactivity disorder
     Dosage: UNK
     Route: 065

REACTIONS (2)
  - Dyskinesia [Recovered/Resolved]
  - Psychotic disorder [Unknown]
